FAERS Safety Report 8470504-3 (Version None)
Quarter: 2012Q2

REPORT INFORMATION
  Report Type: 
  Country: None (occurrence: None)
  Receive Date: 20120627
  Receipt Date: 20110822
  Transmission Date: 20120825
  Serious: No
  Sender: FDA-Public Use
  Company Number: US-MYLANLABS-2011S1017566

PATIENT
  Age: 80 Year
  Sex: Male

DRUGS (1)
  1. PERFOROMIST [Suspect]

REACTIONS (2)
  - DRY MOUTH [None]
  - DYSPHAGIA [None]
